FAERS Safety Report 8739570 (Version 2)
Quarter: 2012Q4

REPORT INFORMATION
  Report Type: 
  Country: US (occurrence: None)
  Receive Date: 20120807
  Receipt Date: 20120814
  Transmission Date: 20130627
  Serious: Yes (Hospitalization)
  Sender: FDA-Public Use
  Company Number: 2012AP002302

PATIENT
  Age: 79 Year
  Sex: Female

DRUGS (3)
  1. DILTZAC [Suspect]
     Indication: PRODUCT USED FOR UNKNOWN INDICATION
     Dosage: 360 MG, QD
  2. CLONIDINE [Suspect]
     Indication: PRODUCT USED FOR UNKNOWN INDICATION
     Dosage: .3 MG, TID
  3. DIGOXIN [Suspect]
     Indication: PRODUCT USED FOR UNKNOWN INDICATION
     Dosage: 0.125 MG, QD

REACTIONS (10)
  - Atrioventricular block second degree [None]
  - Arrhythmia [None]
  - Sinus bradycardia [None]
  - Left atrial dilatation [None]
  - Incorrect dose administered [None]
  - Treatment noncompliance [None]
  - Incorrect drug administration duration [None]
  - Toxicity to various agents [None]
  - Nodal arrhythmia [None]
  - Atrioventricular dissociation [None]
